FAERS Safety Report 8987613 (Version 2)
Quarter: 2013Q1

REPORT INFORMATION
  Report Type: Spontaneous
  Country: JP (occurrence: JP)
  Receive Date: 20121227
  Receipt Date: 20130321
  Transmission Date: 20140127
  Serious: Yes (Hospitalization)
  Sender: FDA-Public Use
  Company Number: JP-PFIZER INC-2012326227

PATIENT
  Age: 75 Year
  Sex: Male
  Weight: 58 kg

DRUGS (7)
  1. FOSPHENYTOIN SODIUM [Suspect]
     Indication: EPILEPSY
     Dosage: 13 MG/KG (25 MG/MIN)
     Dates: start: 20121123, end: 20121123
  2. FOSPHENYTOIN SODIUM [Suspect]
     Dosage: 6.5 MG/KG (12.5 MG/MIN)
     Dates: start: 20121124, end: 20121124
  3. FOSPHENYTOIN SODIUM [Suspect]
     Dosage: 6.5 MG/KG (12.5 MG/MIN)
     Dates: start: 20121125, end: 20121126
  4. ELASPOL [Concomitant]
     Indication: RESPIRATORY FAILURE
     Dosage: 300 MG, UNK
     Dates: start: 20121123, end: 20121128
  5. MEROPEN [Concomitant]
     Indication: PNEUMONIA
     Dosage: 2 G, UNK
     Dates: start: 20121123, end: 20121129
  6. OMEPRAZOLE [Concomitant]
     Indication: PROPHYLAXIS
     Dosage: 40 MG, UNK
     Dates: start: 20121121, end: 20121128
  7. ALEVIATIN [Concomitant]
     Dosage: 250 MG, UNK
     Route: 048
     Dates: start: 20121128

REACTIONS (2)
  - Pneumonia [Recovered/Resolved]
  - Hepatic function abnormal [Recovered/Resolved]
